FAERS Safety Report 5690591-5 (Version None)
Quarter: 2008Q1

REPORT INFORMATION
  Report Type: 
  Country: None (occurrence: None)
  Receive Date: 20080331
  Receipt Date: 20080331
  Transmission Date: 20080703
  Serious: Yes (Other)
  Sender: FDA-Public Use
  Company Number: None

PATIENT
  Sex: Male
  Weight: 21.9995 kg

DRUGS (1)
  1. SINGULAIR [Suspect]
     Indication: SEASONAL ALLERGY
     Dosage: 4MG 1X DAILY PO
     Route: 048
     Dates: start: 20070301, end: 20070401

REACTIONS (5)
  - AGGRESSION [None]
  - CRYING [None]
  - FRUSTRATION [None]
  - MOOD SWINGS [None]
  - SELF ESTEEM DECREASED [None]
